FAERS Safety Report 23982743 (Version 1)
Quarter: 2024Q2

REPORT INFORMATION
  Report Type: Report from Study
  Country: ZA (occurrence: ZA)
  Receive Date: 20240617
  Receipt Date: 20240617
  Transmission Date: 20240716
  Serious: Yes (Hospitalization)
  Sender: FDA-Public Use
  Company Number: ZA-BAYER-2024A084722

PATIENT
  Age: 64 Year
  Sex: Female

DRUGS (1)
  1. BETAFERON [Suspect]
     Active Substance: INTERFERON BETA-1B
     Indication: Multiple sclerosis
     Dosage: 1 ML, QOD
     Route: 058
     Dates: start: 20090730, end: 202312

REACTIONS (3)
  - Delirium [Recovered/Resolved]
  - Gait disturbance [None]
  - Bedridden [None]

NARRATIVE: CASE EVENT DATE: 20231101
